FAERS Safety Report 13917418 (Version 2)
Quarter: 2017Q3

REPORT INFORMATION
  Report Type: Spontaneous
  Country: GR (occurrence: GR)
  Receive Date: 20170829
  Receipt Date: 20170919
  Transmission Date: 20171127
  Serious: Yes (Hospitalization, Other)
  Sender: FDA-Public Use
  Company Number: GR-TEVA-801003ROM

PATIENT
  Age: 45 Year
  Sex: Male

DRUGS (4)
  1. PEMETREXED. [Suspect]
     Active Substance: PEMETREXED
     Indication: MESOTHELIOMA
     Route: 065
  2. TEICOPLANIN [Suspect]
     Active Substance: TEICOPLANIN
     Indication: STAPHYLOCOCCAL INFECTION
     Route: 065
  3. CARBOPLATIN. [Suspect]
     Active Substance: CARBOPLATIN
     Indication: MESOTHELIOMA
     Route: 065
  4. LINEZOLID. [Suspect]
     Active Substance: LINEZOLID
     Indication: STAPHYLOCOCCAL INFECTION
     Route: 065

REACTIONS (1)
  - Renal vasculitis [Recovered/Resolved]
